FAERS Safety Report 23486810 (Version 1)
Quarter: 2024Q1

REPORT INFORMATION
  Report Type: Report from Study
  Country: CN (occurrence: CN)
  Receive Date: 20240206
  Receipt Date: 20240206
  Transmission Date: 20240410
  Serious: Yes (Death, Other)
  Sender: FDA-Public Use
  Company Number: CN-PFIZER INC-202400032415

PATIENT

DRUGS (6)
  1. CYTARABINE [Suspect]
     Active Substance: CYTARABINE
     Indication: Myelodysplastic syndrome
     Dosage: 12 H EACH TIME, DAYS 1-14
     Route: 058
  2. CYTARABINE [Suspect]
     Active Substance: CYTARABINE
     Indication: Myelodysplastic syndrome with excess blasts
  3. ACLARUBICIN [Suspect]
     Active Substance: ACLARUBICIN
     Indication: Myelodysplastic syndrome
     Dosage: 7 MG/M2, 1X/DAY (DAYS 1-8)
     Route: 041
  4. ACLARUBICIN [Suspect]
     Active Substance: ACLARUBICIN
     Indication: Myelodysplastic syndrome with excess blasts
  5. GRANULOCYTE COLONY-STIMULATING FACTOR NOS [Suspect]
     Active Substance: GRANULOCYTE COLONY-STIMULATING FACTOR NOS
     Indication: Myelodysplastic syndrome
     Dosage: DAYS 1-14
     Route: 058
  6. GRANULOCYTE COLONY-STIMULATING FACTOR NOS [Suspect]
     Active Substance: GRANULOCYTE COLONY-STIMULATING FACTOR NOS
     Indication: Myelodysplastic syndrome with excess blasts

REACTIONS (3)
  - Pneumonia [Fatal]
  - Cardiac failure acute [Fatal]
  - Myelosuppression [Fatal]
